FAERS Safety Report 10633470 (Version 2)
Quarter: 2015Q1

REPORT INFORMATION
  Report Type: Spontaneous
  Country: US (occurrence: None)
  Receive Date: 20141203
  Receipt Date: 20150226
  Transmission Date: 20150720
  Serious: Yes (Hospitalization, Other)
  Sender: FDA-Public Use
  Company Number: 2640304

PATIENT
  Age: 63 Year
  Sex: Male
  Weight: 80.2 kg

DRUGS (14)
  1. INVESTIGATIONAL DRUG [Concomitant]
     Active Substance: INVESTIGATIONAL PRODUCT
  2. MESALAZINE [Concomitant]
     Active Substance: MESALAMINE
  3. OXYCODONE HYDROCHLORIDE AND ACETAMINOPHEN [Concomitant]
     Active Substance: ACETAMINOPHEN\OXYCODONE HYDROCHLORIDE
  4. VALACICLOVIR HYDROCHLORIDE [Concomitant]
     Active Substance: VALACYCLOVIR HYDROCHLORIDE
  5. VORICONAZOLE. [Concomitant]
     Active Substance: VORICONAZOLE
  6. OXYCODONE [Concomitant]
     Active Substance: OXYCODONE
  7. CALCIUM CITRATE W/COLECALCIFEROL [Concomitant]
  8. SENNA [Concomitant]
     Active Substance: SENNA LEAF\SENNOSIDES\SENNOSIDES A AND B
  9. COLECALCIFEROL [Concomitant]
     Active Substance: CHOLECALCIFEROL
  10. CYTARABINE. [Suspect]
     Active Substance: CYTARABINE
     Indication: MYELODYSPLASTIC SYNDROME
     Route: 058
     Dates: start: 20140701, end: 20140906
  11. LISINOPRIL. [Concomitant]
     Active Substance: LISINOPRIL
  12. MOXIFLOXACIN [Concomitant]
     Active Substance: MOXIFLOXACIN
  13. PARACETAMOL [Concomitant]
     Active Substance: ACETAMINOPHEN
  14. SALICYLIC ACID. [Concomitant]
     Active Substance: SALICYLIC ACID

REACTIONS (19)
  - Chest pain [None]
  - Nephrolithiasis [None]
  - Diverticulum [None]
  - Dyspnoea exertional [None]
  - Drug dose omission [None]
  - Anaemia [None]
  - Orthostatic intolerance [None]
  - Headache [None]
  - Drug ineffective [None]
  - Fatigue [None]
  - Faeces discoloured [None]
  - Hypovolaemia [None]
  - Hepatic cyst [None]
  - Presyncope [None]
  - Enteritis infectious [None]
  - Crohn^s disease [None]
  - Syncope [None]
  - Activities of daily living impaired [None]
  - Diarrhoea [None]

NARRATIVE: CASE EVENT DATE: 20140827
